FAERS Safety Report 10558296 (Version 4)
Quarter: 2015Q1

REPORT INFORMATION
  Report Type: Spontaneous
  Country: IT (occurrence: None)
  Receive Date: 20141029
  Receipt Date: 20150317
  Transmission Date: 20150720
  Serious: Yes (Hospitalization)
  Sender: FDA-Public Use
  Company Number: IT2014GSK000142

PATIENT
  Age: 56 Year
  Sex: Male
  Weight: 60 kg

DRUGS (4)
  1. PREZISTA [Concomitant]
     Active Substance: DARUNAVIR ETHANOLATE
  2. MARAVIROC [Suspect]
     Active Substance: MARAVIROC
     Indication: HIV INFECTION
     Dates: start: 20130412, end: 20141210
  3. INTELENCE (ETRAVIRINE) [Concomitant]
  4. NORVIR [Concomitant]
     Active Substance: RITONAVIR

REACTIONS (3)
  - Biliary tract disorder [None]
  - Cholangitis [None]
  - Pancreatic duct dilatation [None]

NARRATIVE: CASE EVENT DATE: 20140924
